FAERS Safety Report 6805763-3 (Version None)
Quarter: 2010Q2

REPORT INFORMATION
  Report Type: 
  Country: None (occurrence: None)
  Receive Date: 20100628
  Receipt Date: 20100614
  Transmission Date: 20101027
  Serious: Yes (Hospitalization)
  Sender: FDA-Public Use
  Company Number: US-MYLANLABS-2010S1010513

PATIENT
  Age: 84 Year
  Sex: Male

DRUGS (2)
  1. BUPROPION HCL [Suspect]
     Dosage: 100MG TWICE DAILY
  2. BUPROPION HCL [Suspect]
     Dosage: 150MG TWICE DAILY

REACTIONS (3)
  - ATAXIA [None]
  - MENTAL STATUS CHANGES [None]
  - TREMOR [None]
